FAERS Safety Report 5397926-1 (Version None)
Quarter: 2007Q3

REPORT INFORMATION
  Report Type: 
  Country: None (occurrence: None)
  Receive Date: 20070726
  Receipt Date: 20070717
  Transmission Date: 20080115
  Serious: Yes (Hospitalization, Other)
  Sender: FDA-Public Use
  Company Number: US-KINGPHARMUSA00001-K200700901

PATIENT

DRUGS (6)
  1. ALTACE [Suspect]
     Route: 048
     Dates: end: 20070508
  2. LASILIX   /00032601/ [Suspect]
     Route: 048
     Dates: end: 20070508
  3. CORDARONE /00133102/ [Suspect]
     Dosage: 200 MG, UNK
     Route: 048
  4. ALDACTONE [Suspect]
     Route: 048
     Dates: end: 20070508
  5. CELEBREX [Suspect]
     Indication: PAIN IN EXTREMITY
     Route: 048
  6. PREVISCAN  /00789001/ [Concomitant]
     Route: 048

REACTIONS (12)
  - ANURIA [None]
  - BLOOD CREATININE INCREASED [None]
  - CARDIAC FAILURE [None]
  - DRUG INTERACTION [None]
  - DYSPNOEA [None]
  - HAEMODIALYSIS [None]
  - HYPERKALAEMIA [None]
  - HYPOPERFUSION [None]
  - LOW CARDIAC OUTPUT SYNDROME [None]
  - RENAL FAILURE ACUTE [None]
  - RENAL TUBULAR NECROSIS [None]
  - VOMITING [None]
